FAERS Safety Report 6761317-9 (Version None)
Quarter: 2010Q2

REPORT INFORMATION
  Report Type: 
  Country: None (occurrence: None)
  Receive Date: 20100608
  Receipt Date: 20090615
  Transmission Date: 20101027
  Serious: Yes (Hospitalization)
  Sender: FDA-Public Use
  Company Number: PHHY2009MX19028

PATIENT
  Age: 39 Year
  Sex: Female

DRUGS (4)
  1. SIMULECT [Suspect]
     Indication: RENAL TRANSPLANT
     Dosage: 20 MG, ONCE/SINGLE
     Route: 042
  2. SOLU-MEDROL [Concomitant]
     Indication: RENAL TRANSPLANT
     Dosage: 1 G
     Route: 042
  3. CELLCEPT [Concomitant]
     Indication: RENAL TRANSPLANT
     Dosage: 1 G
  4. PROGRAF [Concomitant]
     Indication: IMMUNOSUPPRESSION

REACTIONS (16)
  - ANAL SPHINCTER ATONY [None]
  - BRONCHOSPASM [None]
  - CEREBRAL HAEMATOMA [None]
  - CRANIOTOMY [None]
  - CSF PRESSURE ABNORMAL [None]
  - HYPERCAPNIA [None]
  - HYPERTENSIVE CRISIS [None]
  - INDIFFERENCE [None]
  - NEUROLOGICAL SYMPTOM [None]
  - OLIGURIA [None]
  - RENAL HAEMATOMA [None]
  - RENAL IMPAIRMENT [None]
  - RENAL SURGERY [None]
  - RENAL VESSEL DISORDER [None]
  - SOMNOLENCE [None]
  - THROMBOCYTOPENIA [None]
